FAERS Safety Report 25256000 (Version 1)
Quarter: 2025Q2

REPORT INFORMATION
  Report Type: Spontaneous
  Country: US (occurrence: None)
  Receive Date: 20250429
  Receipt Date: 20250429
  Transmission Date: 20250716
  Serious: No
  Sender: FDA-CTU
  Company Number: None

PATIENT
  Age: 66 Year
  Sex: Female
  Weight: 46.8 kg

DRUGS (8)
  1. VANCOMYCIN [Suspect]
     Active Substance: VANCOMYCIN
     Indication: Clostridium difficile infection
     Dosage: FREQUENCY : 3 TIMES A DAY;?
     Route: 048
     Dates: start: 20250301
  2. CLONAZEPAM [Concomitant]
     Active Substance: CLONAZEPAM
  3. METOCLOPRAMIDE [Concomitant]
     Active Substance: METOCLOPRAMIDE
  4. ZOFRAN [Concomitant]
     Active Substance: ONDANSETRON HYDROCHLORIDE
  5. MAXALT [Concomitant]
     Active Substance: RIZATRIPTAN BENZOATE
  6. PEPCID [Concomitant]
     Active Substance: FAMOTIDINE
  7. VENTOLIN [Concomitant]
     Active Substance: ALBUTEROL SULFATE
  8. Mometaaone [Concomitant]

REACTIONS (21)
  - Dysphonia [None]
  - Oropharyngeal pain [None]
  - Myalgia [None]
  - Muscle spasms [None]
  - Asthenia [None]
  - Abdominal pain upper [None]
  - Pelvic pain [None]
  - Back pain [None]
  - Chills [None]
  - Tremor [None]
  - Lymphadenopathy [None]
  - Abdominal discomfort [None]
  - Nausea [None]
  - Flatulence [None]
  - Headache [None]
  - Chest pain [None]
  - Fatigue [None]
  - Hypotension [None]
  - Vision blurred [None]
  - Dry eye [None]
  - Dry skin [None]

NARRATIVE: CASE EVENT DATE: 20250401
